FAERS Safety Report 7421135-5 (Version None)
Quarter: 2011Q2

REPORT INFORMATION
  Report Type: 
  Country: None (occurrence: None)
  Receive Date: 20110418
  Receipt Date: 20110412
  Transmission Date: 20111010
  Serious: Yes (Other)
  Sender: FDA-Public Use
  Company Number: FR-GENZYME-THYM-1002406

PATIENT
  Age: 33 Year
  Sex: Male

DRUGS (14)
  1. CELLCEPT [Concomitant]
     Dosage: 1 G, QD
     Route: 065
  2. PREDNISONE [Concomitant]
     Dosage: 250 MG, QD
     Route: 065
  3. PREDNISONE [Concomitant]
     Dosage: 120 MG, QD
     Route: 065
  4. VALGANCICLOVIR [Concomitant]
     Indication: ANTIVIRAL PROPHYLAXIS
     Dosage: 900 MG, QD
  5. PREDNISONE [Concomitant]
     Indication: IMMUNOSUPPRESSION
     Dosage: 500 MG, QD
     Route: 065
  6. VANCOMYCIN HCL [Concomitant]
     Indication: ANTIBIOTIC PROPHYLAXIS
     Route: 065
  7. CLAFORAN [Concomitant]
     Indication: ANTIBIOTIC PROPHYLAXIS
     Route: 065
  8. THYMOGLOBULIN [Suspect]
     Indication: PROPHYLAXIS AGAINST TRANSPLANT REJECTION
     Dosage: 1 MG/KG, QD
     Route: 042
  9. CELLCEPT [Concomitant]
     Indication: IMMUNOSUPPRESSION
     Dosage: 2 G, QD
     Route: 065
  10. PREDNISONE [Concomitant]
     Dosage: 60 MG, QD
     Route: 065
  11. RED BLOOD CELLS [Concomitant]
     Indication: BLOOD PRODUCT TRANSFUSION
     Route: 065
  12. PROGRAF [Concomitant]
     Indication: IMMUNOSUPPRESSION
     Dosage: UNK
     Route: 048
  13. PREDNISONE [Concomitant]
     Dosage: 10 MG, QD
     Route: 065
  14. TRIMETHOPRIM + SULFAMETHOXAZOLE [Concomitant]
     Indication: ANTIBIOTIC PROPHYLAXIS
     Dosage: UNK
     Route: 065

REACTIONS (2)
  - ORAL HERPES [None]
  - TRANSPLANT REJECTION [None]
